FAERS Safety Report 19801100 (Version 1)
Quarter: 2021Q3

REPORT INFORMATION
  Report Type: Report from Study
  Country: None (occurrence: US)
  Receive Date: 20210908
  Receipt Date: 20210908
  Transmission Date: 20211014
  Serious: Yes (Hospitalization)
  Sender: FDA-Public Use
  Company Number: US-ABBVIE-21K-163-4007351-00

PATIENT
  Sex: Female
  Weight: 99.88 kg

DRUGS (10)
  1. CLONAZEPAM. [Concomitant]
     Active Substance: CLONAZEPAM
     Indication: RESTLESS LEGS SYNDROME
  2. HUMIRA [Suspect]
     Active Substance: ADALIMUMAB
     Dosage: CITRATE FREE?2ND SHOT
     Route: 058
     Dates: start: 20210505, end: 20210714
  3. ZOLOFT [Concomitant]
     Active Substance: SERTRALINE HYDROCHLORIDE
     Indication: PRODUCT USED FOR UNKNOWN INDICATION
  4. LISINOPRIL. [Concomitant]
     Active Substance: LISINOPRIL
     Indication: BLOOD PRESSURE MEASUREMENT
  5. METOPROLOL. [Concomitant]
     Active Substance: METOPROLOL
     Indication: BLOOD PRESSURE MEASUREMENT
  6. TRAMADOL. [Concomitant]
     Active Substance: TRAMADOL
     Indication: PAIN
  7. ACETAMINOPHEN. [Concomitant]
     Active Substance: ACETAMINOPHEN
     Indication: ARTHRITIS
  8. HUMIRA [Suspect]
     Active Substance: ADALIMUMAB
     Indication: PSORIASIS
     Dosage: CITRATE FREE?1ST SHOT
     Route: 058
     Dates: start: 20210428, end: 20210428
  9. COUMADIN [Concomitant]
     Active Substance: WARFARIN SODIUM
     Indication: ANTICOAGULANT THERAPY
  10. GABAPENTIN. [Concomitant]
     Active Substance: GABAPENTIN
     Indication: PRODUCT USED FOR UNKNOWN INDICATION

REACTIONS (3)
  - Skin infection [Recovering/Resolving]
  - Immunodeficiency [Unknown]
  - Psoriasis [Unknown]

NARRATIVE: CASE EVENT DATE: 2021
